FAERS Safety Report 7087920-7 (Version None)
Quarter: 2010Q4

REPORT INFORMATION
  Report Type: 
  Country: None (occurrence: None)
  Receive Date: 20101108
  Receipt Date: 20101022
  Transmission Date: 20110411
  Serious: Yes (Hospitalization)
  Sender: FDA-Public Use
  Company Number: BR-US-EMD SERONO, INC.-7015565

PATIENT
  Sex: Female

DRUGS (6)
  1. REBIF [Suspect]
     Indication: RELAPSING-REMITTING MULTIPLE SCLEROSIS
     Route: 058
     Dates: start: 20090304
  2. REBIF [Suspect]
     Route: 058
     Dates: start: 20020326
  3. ATENOLOL [Concomitant]
  4. ENALAPRIL MALEATE [Concomitant]
  5. ATORVASTATIN CALCIUM [Concomitant]
  6. ISOSORBIDE DINITRATE [Concomitant]

REACTIONS (20)
  - ABDOMINAL PAIN [None]
  - ABDOMINAL RIGIDITY [None]
  - AGITATION [None]
  - BLOOD CHOLESTEROL INCREASED [None]
  - DRUG HYPERSENSITIVITY [None]
  - EAR INFECTION [None]
  - HEADACHE [None]
  - IMMUNE SYSTEM DISORDER [None]
  - INJECTION SITE ERYTHEMA [None]
  - INJECTION SITE NODULE [None]
  - INJECTION SITE PAIN [None]
  - MUSCULOSKELETAL STIFFNESS [None]
  - MYOCARDIAL INFARCTION [None]
  - NERVOUSNESS [None]
  - NODULE [None]
  - SLEEP DISORDER [None]
  - TOOTH INFECTION [None]
  - TREMOR [None]
  - VISION BLURRED [None]
  - VISUAL IMPAIRMENT [None]
